FAERS Safety Report 4398231-2 (Version None)
Quarter: 2004Q3

REPORT INFORMATION
  Report Type: 
  Country: None (occurrence: None)
  Receive Date: 20040715
  Receipt Date: 20040712
  Transmission Date: 20050211
  Serious: Yes (Death)
  Sender: FDA-Public Use
  Company Number: 200416858GDDC

PATIENT
  Age: 83 Year
  Sex: Male

DRUGS (3)
  1. ENOXAPARIN SODIUM [Suspect]
     Indication: PULMONARY EMBOLISM
     Route: 058
     Dates: start: 20040616
  2. NIFEDIPINE [Concomitant]
     Route: 048
     Dates: start: 20020101
  3. CAPECITABINE [Concomitant]
     Indication: CHEMOTHERAPY
     Dosage: DOSE: UNK
     Dates: end: 20040526

REACTIONS (1)
  - DEATH [None]
